FAERS Safety Report 5125290-1 (Version None)
Quarter: 2006Q4

REPORT INFORMATION
  Report Type: 
  Country: None (occurrence: None)
  Receive Date: 20061006
  Receipt Date: 20060922
  Transmission Date: 20070319
  Serious: Yes (Hospitalization)
  Sender: FDA-Public Use
  Company Number: 2006001850

PATIENT
  Age: 67 Year
  Sex: Male
  Weight: 74.3 kg

DRUGS (8)
  1. ERLOTINIB (TABLET) [Suspect]
     Indication: CARCINOID TUMOUR
     Dosage: SEE IMAGE
     Route: 048
     Dates: start: 20060818
  2. R115777 (TABLET) [Suspect]
     Indication: CARCINOID TUMOUR
     Dosage: 300 MG (BID DAYS 1-21), ORAL
     Route: 048
     Dates: start: 20060818
  3. GLYBURIDE [Concomitant]
  4. FERROUS SULFATE TAB [Concomitant]
  5. KEPPRA [Concomitant]
  6. LORTAB [Concomitant]
  7. SANDOSTATIN [Concomitant]
  8. ZOMETA [Concomitant]

REACTIONS (10)
  - ABDOMINAL PAIN [None]
  - ANAEMIA [None]
  - ANOREXIA [None]
  - ASTHENIA [None]
  - CHEST PAIN [None]
  - CONFUSIONAL STATE [None]
  - DEHYDRATION [None]
  - DIARRHOEA [None]
  - FATIGUE [None]
  - FLATULENCE [None]
